FAERS Safety Report 24564024 (Version 1)
Quarter: 2024Q4

REPORT INFORMATION
  Report Type: Report from Study
  Country: JP (occurrence: JP)
  Receive Date: 20241030
  Receipt Date: 20241030
  Transmission Date: 20250115
  Serious: Yes (Other)
  Sender: JOHNSON AND JOHNSON
  Company Number: JP-JNJFOC-20241056841

PATIENT

DRUGS (8)
  1. ERLEADA [Suspect]
     Active Substance: APALUTAMIDE
     Indication: Prostate cancer
     Dosage: N=3
     Route: 048
  2. ERLEADA [Suspect]
     Active Substance: APALUTAMIDE
     Dosage: N=7
     Route: 048
  3. ERLEADA [Suspect]
     Active Substance: APALUTAMIDE
     Dosage: N=3
     Route: 048
  4. ERLEADA [Suspect]
     Active Substance: APALUTAMIDE
     Dosage: N=111
     Route: 048
  5. ERLEADA [Suspect]
     Active Substance: APALUTAMIDE
     Dosage: N=69
     Route: 048
  6. FLUTAMIDE [Concomitant]
     Active Substance: FLUTAMIDE
  7. BICALUTAMIDE [Concomitant]
     Active Substance: BICALUTAMIDE
  8. ENZALUTAMIDE [Concomitant]
     Active Substance: ENZALUTAMIDE

REACTIONS (1)
  - Drug-induced liver injury [Unknown]
